FAERS Safety Report 16821253 (Version 1)
Quarter: 2019Q3

REPORT INFORMATION
  Report Type: Spontaneous
  Country: BE (occurrence: BE)
  Receive Date: 20190918
  Receipt Date: 20190918
  Transmission Date: 20191005
  Serious: Yes (Hospitalization, Other)
  Sender: FDA-Public Use
  Company Number: BE-ACCORD-155069

PATIENT
  Age: 21 Year
  Sex: Male

DRUGS (9)
  1. CARMUSTINE. [Suspect]
     Active Substance: CARMUSTINE
     Indication: DIFFUSE LARGE B-CELL LYMPHOMA
  2. ETOPOSIDE. [Suspect]
     Active Substance: ETOPOSIDE
     Indication: DIFFUSE LARGE B-CELL LYMPHOMA
  3. MELPHALAN. [Suspect]
     Active Substance: MELPHALAN
     Indication: DIFFUSE LARGE B-CELL LYMPHOMA
  4. DEXAMETHASONE. [Suspect]
     Active Substance: DEXAMETHASONE
     Indication: DIFFUSE LARGE B-CELL LYMPHOMA
  5. RITUXIMAB. [Suspect]
     Active Substance: RITUXIMAB
     Indication: DIFFUSE LARGE B-CELL LYMPHOMA
  6. CYTARABINE. [Suspect]
     Active Substance: CYTARABINE
     Indication: DIFFUSE LARGE B-CELL LYMPHOMA
     Dosage: TWICE DAILY FOR 4 DAYS
  7. CYTARABINE/CYTARABINE HYDROCHLORIDE/CYTARABINE OCFOSFATE [Suspect]
     Active Substance: CYTARABINE
     Indication: DIFFUSE LARGE B-CELL LYMPHOMA
     Dosage: HIGH-DOSE ARA-C (2 X 2000 MG/M2)
  8. PIPERACILLIN/TAZOBACTAM [Concomitant]
     Indication: FEBRILE NEUTROPENIA
     Route: 042
  9. CISPLATIN. [Suspect]
     Active Substance: CISPLATIN
     Indication: DIFFUSE LARGE B-CELL LYMPHOMA

REACTIONS (14)
  - Jejunal perforation [Recovered/Resolved]
  - Aspergillus infection [Recovered/Resolved]
  - Cytomegalovirus infection [Recovered/Resolved]
  - Intestinal haemorrhage [Recovered/Resolved]
  - Haemodynamic instability [Recovered/Resolved]
  - Gastrointestinal stoma complication [Recovered/Resolved]
  - Gastrointestinal inflammation [Recovered/Resolved]
  - Volvulus of small bowel [Recovered/Resolved]
  - Hepatotoxicity [Recovered/Resolved]
  - Small intestinal obstruction [Recovered/Resolved]
  - Gastrointestinal infection [Recovered/Resolved]
  - Bronchopulmonary aspergillosis [Recovered/Resolved]
  - Colitis [Recovered/Resolved]
  - Febrile neutropenia [Recovered/Resolved]
